FAERS Safety Report 11891881 (Version 1)
Quarter: 2016Q1

REPORT INFORMATION
  Report Type: Spontaneous
  Country: CH (occurrence: CH)
  Receive Date: 20160106
  Receipt Date: 20160106
  Transmission Date: 20160526
  Serious: Yes (Hospitalization)
  Sender: FDA-Public Use
  Company Number: CH-MEDA-2015120084

PATIENT
  Age: 65 Year
  Sex: Female

DRUGS (15)
  1. TOREM 10 MG [Suspect]
     Active Substance: TORSEMIDE
     Route: 048
  2. SANDIMMUN NEORAL 50 MG [Suspect]
     Active Substance: CYCLOSPORINE
     Dosage: 50 MG-0-25 MG
     Route: 048
  3. AMLODIPIN [Suspect]
     Active Substance: AMLODIPINE BESYLATE
     Route: 048
     Dates: start: 201507
  4. COSAAR 50 MG [Suspect]
     Active Substance: LOSARTAN POTASSIUM
     Route: 048
  5. HEPSERA [Suspect]
     Active Substance: ADEFOVIR DIPIVOXIL
     Route: 048
  6. COLCHICIN [Suspect]
     Active Substance: COLCHICINE
     Route: 048
  7. MIMPARA 30 MG [Suspect]
     Active Substance: CINACALCET HYDROCHLORIDE
     Route: 048
  8. ZEFFIX 100 MG [Suspect]
     Active Substance: LAMIVUDINE
     Route: 048
  9. SAROTEN [Suspect]
     Active Substance: AMITRIPTYLINE
     Route: 048
  10. TRADJENTA [Suspect]
     Active Substance: LINAGLIPTIN
     Route: 048
     Dates: start: 201504
  11. SERESTA 15 MG [Suspect]
     Active Substance: OXAZEPAM
     Route: 048
  12. METOPROLOL. [Suspect]
     Active Substance: METOPROLOL
     Route: 048
  13. SOVALDI [Suspect]
     Active Substance: SOFOSBUVIR
     Route: 048
     Dates: start: 20150504, end: 20151018
  14. DAKLINZA [Suspect]
     Active Substance: DACLATASVIR
     Route: 048
     Dates: start: 20150504, end: 20151018
  15. ADENURIC [Suspect]
     Active Substance: FEBUXOSTAT
     Route: 048

REACTIONS (2)
  - Abdominal pain [Recovering/Resolving]
  - Mesenteric vein thrombosis [Recovering/Resolving]

NARRATIVE: CASE EVENT DATE: 20151120
